FAERS Safety Report 25044641 (Version 1)
Quarter: 2025Q1

REPORT INFORMATION
  Report Type: Spontaneous
  Country: CA (occurrence: CA)
  Receive Date: 20250306
  Receipt Date: 20250306
  Transmission Date: 20250408
  Serious: Yes (Death, Life-Threatening, Hospitalization, Disabling, Congenital Anomaly, Other)
  Sender: Haleon PLC
  Company Number: CA-SANDOZ-SDZ2024CA107730

PATIENT
  Age: 40 Year
  Sex: Female
  Weight: 96 kg

DRUGS (374)
  1. DICLOFENAC SODIUM [Suspect]
     Active Substance: DICLOFENAC SODIUM
     Indication: Product used for unknown indication
     Route: 058
  2. DICLOFENAC SODIUM [Suspect]
     Active Substance: DICLOFENAC SODIUM
     Route: 058
  3. DICLOFENAC SODIUM [Suspect]
     Active Substance: DICLOFENAC SODIUM
     Route: 065
  4. DICLOFENAC SODIUM [Suspect]
     Active Substance: DICLOFENAC SODIUM
     Route: 065
  5. DICLOFENAC SODIUM [Suspect]
     Active Substance: DICLOFENAC SODIUM
     Route: 065
  6. ADALIMUMAB [Suspect]
     Active Substance: ADALIMUMAB
     Indication: Rheumatoid arthritis
     Route: 058
  7. ADALIMUMAB [Suspect]
     Active Substance: ADALIMUMAB
     Route: 058
  8. ADALIMUMAB [Suspect]
     Active Substance: ADALIMUMAB
     Route: 042
  9. ADALIMUMAB [Suspect]
     Active Substance: ADALIMUMAB
     Route: 042
  10. ADALIMUMAB [Suspect]
     Active Substance: ADALIMUMAB
     Route: 058
  11. ADALIMUMAB [Suspect]
     Active Substance: ADALIMUMAB
     Route: 058
  12. CANDESARTAN [Suspect]
     Active Substance: CANDESARTAN
     Indication: Migraine
     Route: 048
  13. CANDESARTAN [Suspect]
     Active Substance: CANDESARTAN
     Indication: Product used for unknown indication
     Route: 065
  14. CANDESARTAN [Suspect]
     Active Substance: CANDESARTAN
     Indication: Rheumatoid arthritis
  15. ERELZI [Suspect]
     Active Substance: ETANERCEPT-SZZS
     Indication: Rheumatoid arthritis
     Route: 058
  16. ERELZI [Suspect]
     Active Substance: ETANERCEPT-SZZS
     Route: 058
  17. ERELZI [Suspect]
     Active Substance: ETANERCEPT-SZZS
     Route: 058
  18. ERELZI [Suspect]
     Active Substance: ETANERCEPT-SZZS
     Route: 065
  19. ERELZI [Suspect]
     Active Substance: ETANERCEPT-SZZS
     Route: 065
  20. ERELZI [Suspect]
     Active Substance: ETANERCEPT-SZZS
     Route: 048
  21. LEFLUNOMIDE [Suspect]
     Active Substance: LEFLUNOMIDE
     Indication: Rheumatoid arthritis
     Route: 048
  22. LEFLUNOMIDE [Suspect]
     Active Substance: LEFLUNOMIDE
     Indication: Product used for unknown indication
     Route: 065
  23. LEFLUNOMIDE [Suspect]
     Active Substance: LEFLUNOMIDE
     Route: 065
  24. LEFLUNOMIDE [Suspect]
     Active Substance: LEFLUNOMIDE
     Route: 048
  25. LEFLUNOMIDE [Suspect]
     Active Substance: LEFLUNOMIDE
     Route: 065
  26. LEFLUNOMIDE [Suspect]
     Active Substance: LEFLUNOMIDE
     Route: 065
  27. CETIRIZINE [Suspect]
     Active Substance: CETIRIZINE HYDROCHLORIDE
     Indication: Rheumatoid arthritis
     Route: 065
  28. CETIRIZINE [Suspect]
     Active Substance: CETIRIZINE HYDROCHLORIDE
     Route: 065
  29. CETIRIZINE [Suspect]
     Active Substance: CETIRIZINE HYDROCHLORIDE
     Route: 065
  30. CETIRIZINE [Suspect]
     Active Substance: CETIRIZINE HYDROCHLORIDE
     Route: 065
  31. CETIRIZINE [Suspect]
     Active Substance: CETIRIZINE HYDROCHLORIDE
     Route: 065
  32. CETIRIZINE [Suspect]
     Active Substance: CETIRIZINE HYDROCHLORIDE
     Route: 048
  33. CETIRIZINE [Suspect]
     Active Substance: CETIRIZINE HYDROCHLORIDE
     Route: 048
  34. CETIRIZINE [Suspect]
     Active Substance: CETIRIZINE HYDROCHLORIDE
     Route: 065
  35. CETIRIZINE [Suspect]
     Active Substance: CETIRIZINE HYDROCHLORIDE
     Route: 065
  36. CETIRIZINE [Suspect]
     Active Substance: CETIRIZINE HYDROCHLORIDE
     Route: 065
  37. RAMIPRIL [Suspect]
     Active Substance: RAMIPRIL
     Indication: Rheumatoid arthritis
     Route: 065
  38. RAMIPRIL [Suspect]
     Active Substance: RAMIPRIL
     Indication: Product used for unknown indication
     Route: 065
  39. RAMIPRIL [Suspect]
     Active Substance: RAMIPRIL
     Route: 016
  40. ISOPROPYL ALCOHOL [Suspect]
     Active Substance: ISOPROPYL ALCOHOL
     Indication: Product used for unknown indication
     Route: 065
  41. ISOPROPYL ALCOHOL [Suspect]
     Active Substance: ISOPROPYL ALCOHOL
     Route: 065
  42. KEVZARA [Suspect]
     Active Substance: SARILUMAB
     Indication: Product used for unknown indication
     Route: 065
  43. LAMICTAL [Suspect]
     Active Substance: LAMOTRIGINE
     Indication: Product used for unknown indication
     Route: 048
  44. LAMICTAL [Suspect]
     Active Substance: LAMOTRIGINE
     Route: 048
  45. LAMICTAL [Suspect]
     Active Substance: LAMOTRIGINE
     Route: 048
  46. LAMICTAL [Suspect]
     Active Substance: LAMOTRIGINE
     Route: 048
  47. LAMICTAL [Suspect]
     Active Substance: LAMOTRIGINE
     Route: 048
  48. LAMICTAL [Suspect]
     Active Substance: LAMOTRIGINE
     Route: 048
  49. LAMICTAL [Suspect]
     Active Substance: LAMOTRIGINE
     Route: 048
  50. LAMICTAL [Suspect]
     Active Substance: LAMOTRIGINE
     Route: 048
  51. LAMICTAL [Suspect]
     Active Substance: LAMOTRIGINE
     Route: 048
  52. FLUMETHASONE PIVALATE [Suspect]
     Active Substance: FLUMETHASONE PIVALATE
     Indication: Product used for unknown indication
     Route: 003
  53. MINOCYCLINE HYDROCHLORIDE [Suspect]
     Active Substance: MINOCYCLINE HYDROCHLORIDE
     Indication: Product used for unknown indication
     Route: 065
  54. HAIR KERATIN AMINO ACIDS GOLD COMPLEX [Suspect]
     Active Substance: HAIR KERATIN AMINO ACIDS GOLD COMPLEX
     Indication: Rheumatoid arthritis
     Route: 065
  55. MEGLUMINE [Suspect]
     Active Substance: MEGLUMINE
     Indication: Product used for unknown indication
     Route: 065
  56. MEGLUMINE [Suspect]
     Active Substance: MEGLUMINE
     Route: 065
  57. METHYLPREDNISOLONE [Suspect]
     Active Substance: METHYLPREDNISOLONE
     Indication: Product used for unknown indication
     Route: 065
  58. METHYLPREDNISOLONE [Suspect]
     Active Substance: METHYLPREDNISOLONE
     Route: 065
  59. METHYLPREDNISOLONE [Suspect]
     Active Substance: METHYLPREDNISOLONE
     Route: 065
  60. MINOCIN [Suspect]
     Active Substance: MINOCYCLINE HYDROCHLORIDE
     Indication: Rheumatoid arthritis
     Route: 065
  61. MINOCYCLINE [Suspect]
     Active Substance: MINOCYCLINE HYDROCHLORIDE
     Indication: Product used for unknown indication
     Route: 065
  62. MYRBETRIQ [Suspect]
     Active Substance: MIRABEGRON
     Indication: Product used for unknown indication
     Route: 065
  63. MYRBETRIQ [Suspect]
     Active Substance: MIRABEGRON
     Route: 065
  64. MYRBETRIQ [Suspect]
     Active Substance: MIRABEGRON
     Route: 065
  65. MYRBETRIQ [Suspect]
     Active Substance: MIRABEGRON
     Route: 065
  66. MYRBETRIQ [Suspect]
     Active Substance: MIRABEGRON
     Route: 065
  67. NAPROXEN [Suspect]
     Active Substance: NAPROXEN
     Indication: Product used for unknown indication
     Route: 065
  68. NAPROXEN [Suspect]
     Active Substance: NAPROXEN
     Route: 065
  69. NAPROXEN SODIUM [Suspect]
     Active Substance: NAPROXEN SODIUM
     Indication: Rheumatoid arthritis
     Route: 065
  70. NAPROXEN SODIUM [Suspect]
     Active Substance: NAPROXEN SODIUM
     Route: 065
  71. NAPROXEN SODIUM [Suspect]
     Active Substance: NAPROXEN SODIUM
     Route: 065
  72. PSEUDOEPHEDRINE [Suspect]
     Active Substance: PSEUDOEPHEDRINE
     Indication: Product used for unknown indication
     Route: 065
  73. NUCALA [Suspect]
     Active Substance: MEPOLIZUMAB
     Indication: Product used for unknown indication
     Route: 065
  74. NUCALA [Suspect]
     Active Substance: MEPOLIZUMAB
     Route: 065
  75. SULFASALAZINE [Suspect]
     Active Substance: SULFASALAZINE
     Indication: Rheumatoid arthritis
     Route: 065
  76. SIMPONI [Suspect]
     Active Substance: GOLIMUMAB
     Indication: Rheumatoid arthritis
     Route: 065
  77. SIMPONI [Suspect]
     Active Substance: GOLIMUMAB
     Indication: Prostatic specific antigen
     Route: 058
  78. SIMPONI [Suspect]
     Active Substance: GOLIMUMAB
     Route: 065
  79. SIMPONI [Suspect]
     Active Substance: GOLIMUMAB
     Route: 065
  80. SIRUKUMAB [Suspect]
     Active Substance: SIRUKUMAB
     Indication: Rheumatoid arthritis
  81. SIRUKUMAB [Suspect]
     Active Substance: SIRUKUMAB
     Indication: Prostatic specific antigen
  82. SIRUKUMAB [Suspect]
     Active Substance: SIRUKUMAB
  83. SIRUKUMAB [Suspect]
     Active Substance: SIRUKUMAB
  84. MYOCHRYSINE [Suspect]
     Active Substance: GOLD SODIUM THIOMALATE
     Indication: Rheumatoid arthritis
     Route: 030
  85. MYOCHRYSINE [Suspect]
     Active Substance: GOLD SODIUM THIOMALATE
     Route: 030
  86. STELARA [Suspect]
     Active Substance: USTEKINUMAB
     Indication: Product used for unknown indication
     Route: 065
  87. PREDNISONE [Suspect]
     Active Substance: PREDNISONE
     Indication: Rheumatoid arthritis
     Route: 048
  88. PREDNISONE [Suspect]
     Active Substance: PREDNISONE
     Route: 048
  89. PREDNISONE [Suspect]
     Active Substance: PREDNISONE
     Route: 048
  90. PREDNISONE [Suspect]
     Active Substance: PREDNISONE
     Route: 048
  91. PREDNISONE [Suspect]
     Active Substance: PREDNISONE
     Route: 065
  92. PREDNISONE [Suspect]
     Active Substance: PREDNISONE
     Route: 048
  93. PREDNISONE [Suspect]
     Active Substance: PREDNISONE
     Route: 048
  94. PREDNISONE [Suspect]
     Active Substance: PREDNISONE
     Route: 048
  95. GOLD SODIUM THIOMALATE [Suspect]
     Active Substance: GOLD SODIUM THIOMALATE
     Indication: Product used for unknown indication
     Route: 065
  96. GOLD SODIUM THIOMALATE [Suspect]
     Active Substance: GOLD SODIUM THIOMALATE
     Route: 065
  97. ASCORBIC ACID\CALCIUM [Suspect]
     Active Substance: ASCORBIC ACID\CALCIUM
     Indication: Product used for unknown indication
     Route: 065
  98. ZINC [Suspect]
     Active Substance: ZINC
     Indication: Product used for unknown indication
     Route: 042
  99. HUMIRA [Suspect]
     Active Substance: ADALIMUMAB
     Indication: Rheumatoid arthritis
     Route: 058
  100. HUMIRA [Suspect]
     Active Substance: ADALIMUMAB
     Route: 058
  101. HUMIRA [Suspect]
     Active Substance: ADALIMUMAB
     Route: 057
  102. HUMIRA [Suspect]
     Active Substance: ADALIMUMAB
     Route: 058
  103. HUMIRA [Suspect]
     Active Substance: ADALIMUMAB
     Route: 065
  104. HUMIRA [Suspect]
     Active Substance: ADALIMUMAB
     Route: 065
  105. HUMIRA [Suspect]
     Active Substance: ADALIMUMAB
     Route: 058
  106. HUMIRA [Suspect]
     Active Substance: ADALIMUMAB
     Route: 058
  107. TOPIRAMATE [Suspect]
     Active Substance: TOPIRAMATE
     Indication: Product used for unknown indication
     Route: 065
  108. TOPIRAMATE [Suspect]
     Active Substance: TOPIRAMATE
     Route: 065
  109. TOPIRAMATE [Suspect]
     Active Substance: TOPIRAMATE
     Route: 065
  110. TOPIRAMATE [Suspect]
     Active Substance: TOPIRAMATE
     Route: 065
  111. TOPIRAMATE [Suspect]
     Active Substance: TOPIRAMATE
     Route: 065
  112. SULFASALAZINE [Suspect]
     Active Substance: SULFASALAZINE
     Indication: Product used for unknown indication
     Route: 065
  113. XELJANZ [Suspect]
     Active Substance: TOFACITINIB CITRATE
     Indication: Product used for unknown indication
     Route: 065
  114. XELJANZ [Suspect]
     Active Substance: TOFACITINIB CITRATE
     Route: 065
  115. XELJANZ [Suspect]
     Active Substance: TOFACITINIB CITRATE
     Route: 065
  116. XELJANZ [Suspect]
     Active Substance: TOFACITINIB CITRATE
     Route: 065
  117. XELJANZ [Suspect]
     Active Substance: TOFACITINIB CITRATE
     Route: 065
  118. XELJANZ [Suspect]
     Active Substance: TOFACITINIB CITRATE
     Route: 048
  119. XELJANZ [Suspect]
     Active Substance: TOFACITINIB CITRATE
     Route: 065
  120. XELJANZ [Suspect]
     Active Substance: TOFACITINIB CITRATE
     Route: 048
  121. XELJANZ [Suspect]
     Active Substance: TOFACITINIB CITRATE
     Route: 048
  122. HYDROCORTISONE PROBUTATE [Suspect]
     Active Substance: HYDROCORTISONE PROBUTATE
     Indication: Rheumatoid arthritis
     Route: 065
  123. NAPROXEN [Suspect]
     Active Substance: NAPROXEN
     Indication: Product used for unknown indication
     Route: 065
  124. PSEUDOEPHEDRINE HYDROCHLORIDE [Suspect]
     Active Substance: PSEUDOEPHEDRINE HYDROCHLORIDE
     Indication: Rheumatoid arthritis
     Route: 065
  125. PSEUDOEPHEDRINE HYDROCHLORIDE [Suspect]
     Active Substance: PSEUDOEPHEDRINE HYDROCHLORIDE
     Route: 065
  126. PSEUDOEPHEDRINE HYDROCHLORIDE [Suspect]
     Active Substance: PSEUDOEPHEDRINE HYDROCHLORIDE
     Route: 065
  127. PSEUDOEPHEDRINE HYDROCHLORIDE [Suspect]
     Active Substance: PSEUDOEPHEDRINE HYDROCHLORIDE
     Route: 065
  128. TETRACYCLINE HYDROCHLORIDE [Suspect]
     Active Substance: TETRACYCLINE HYDROCHLORIDE
     Indication: Rheumatoid arthritis
     Route: 065
  129. TOFACITINIB [Suspect]
     Active Substance: TOFACITINIB
     Indication: Rheumatoid arthritis
     Route: 065
  130. TOFACITINIB CITRATE [Suspect]
     Active Substance: TOFACITINIB CITRATE
     Indication: Rheumatoid arthritis
     Route: 065
  131. TOFACITINIB CITRATE [Suspect]
     Active Substance: TOFACITINIB CITRATE
     Route: 048
  132. FOSAMAX [Suspect]
     Active Substance: ALENDRONATE SODIUM
     Indication: Rheumatoid arthritis
     Route: 048
  133. FOSAMAX [Suspect]
     Active Substance: ALENDRONATE SODIUM
     Route: 016
  134. FOSAMAX [Suspect]
     Active Substance: ALENDRONATE SODIUM
     Route: 058
  135. PERIOGARD [Suspect]
     Active Substance: CHLORHEXIDINE GLUCONATE
     Indication: Product used for unknown indication
     Route: 065
  136. COSENTYX [Concomitant]
     Active Substance: SECUKINUMAB
     Indication: Product used for unknown indication
     Route: 065
  137. HYDROXYCHLOROQUINE [Concomitant]
     Active Substance: HYDROXYCHLOROQUINE
     Indication: Product used for unknown indication
     Route: 058
  138. HYDROXYCHLOROQUINE [Concomitant]
     Active Substance: HYDROXYCHLOROQUINE
     Route: 048
  139. HYDROXYCHLOROQUINE [Concomitant]
     Active Substance: HYDROXYCHLOROQUINE
     Route: 048
  140. HYDROXYCHLOROQUINE [Concomitant]
     Active Substance: HYDROXYCHLOROQUINE
     Route: 065
  141. HYDROXYCHLOROQUINE [Concomitant]
     Active Substance: HYDROXYCHLOROQUINE
     Route: 065
  142. HYDROXYCHLOROQUINE [Concomitant]
     Active Substance: HYDROXYCHLOROQUINE
     Route: 048
  143. HYDROXYCHLOROQUINE [Concomitant]
     Active Substance: HYDROXYCHLOROQUINE
     Route: 058
  144. HYDROXYCHLOROQUINE [Concomitant]
     Active Substance: HYDROXYCHLOROQUINE
     Route: 048
  145. HYDROXYCHLOROQUINE [Concomitant]
     Active Substance: HYDROXYCHLOROQUINE
     Route: 016
  146. HYDROXYCHLOROQUINE [Concomitant]
     Active Substance: HYDROXYCHLOROQUINE
     Route: 058
  147. HYDROXYCHLOROQUINE [Concomitant]
     Active Substance: HYDROXYCHLOROQUINE
     Route: 065
  148. HYDROXYCHLOROQUINE [Concomitant]
     Active Substance: HYDROXYCHLOROQUINE
     Route: 048
  149. HYDROXYCHLOROQUINE [Concomitant]
     Active Substance: HYDROXYCHLOROQUINE
     Route: 065
  150. HYDROXYCHLOROQUINE [Concomitant]
     Active Substance: HYDROXYCHLOROQUINE
     Route: 048
  151. HYDROXYCHLOROQUINE [Concomitant]
     Active Substance: HYDROXYCHLOROQUINE
     Route: 048
  152. HYDROXYCHLOROQUINE [Concomitant]
     Active Substance: HYDROXYCHLOROQUINE
     Route: 048
  153. HYDROXYCHLOROQUINE [Concomitant]
     Active Substance: HYDROXYCHLOROQUINE
     Route: 048
  154. HYDROXYCHLOROQUINE [Concomitant]
     Active Substance: HYDROXYCHLOROQUINE
     Route: 065
  155. HYDROXYCHLOROQUINE [Concomitant]
     Active Substance: HYDROXYCHLOROQUINE
     Route: 065
  156. HYDROXYCHLOROQUINE [Concomitant]
     Active Substance: HYDROXYCHLOROQUINE
     Route: 065
  157. HYDROXYCHLOROQUINE [Concomitant]
     Active Substance: HYDROXYCHLOROQUINE
     Route: 048
  158. HYDROXYCHLOROQUINE [Concomitant]
     Active Substance: HYDROXYCHLOROQUINE
     Route: 065
  159. CALTRATE [Suspect]
     Active Substance: CALCIUM CARBONATE
     Indication: Product used for unknown indication
     Route: 065
  160. VITAMIN C [Suspect]
     Active Substance: ASCORBIC ACID
     Indication: Product used for unknown indication
     Route: 065
  161. NICOTINAMIDE [Suspect]
     Active Substance: NIACINAMIDE
     Indication: Product used for unknown indication
     Route: 065
  162. NICOTINAMIDE [Suspect]
     Active Substance: NIACINAMIDE
     Route: 065
  163. ACETAMINOPHEN [Suspect]
     Active Substance: ACETAMINOPHEN
     Indication: Rheumatoid arthritis
     Route: 065
  164. ACETAMINOPHEN [Suspect]
     Active Substance: ACETAMINOPHEN
     Indication: Product used for unknown indication
     Route: 065
  165. ACETAMINOPHEN [Suspect]
     Active Substance: ACETAMINOPHEN
     Route: 065
  166. ACETAMINOPHEN [Suspect]
     Active Substance: ACETAMINOPHEN
     Route: 065
  167. PHENYLEPHRINE HYDROCHLORIDE [Suspect]
     Active Substance: PHENYLEPHRINE HYDROCHLORIDE
     Indication: Product used for unknown indication
     Route: 065
  168. PHENYLEPHRINE HYDROCHLORIDE [Suspect]
     Active Substance: PHENYLEPHRINE HYDROCHLORIDE
     Route: 065
  169. CHOLECALCIFEROL [Suspect]
     Active Substance: CHOLECALCIFEROL
     Indication: Product used for unknown indication
     Route: 065
  170. HYDROCORTISONE [Suspect]
     Active Substance: HYDROCORTISONE
     Indication: Product used for unknown indication
     Route: 065
  171. HYDROCORTISONE [Suspect]
     Active Substance: HYDROCORTISONE
     Route: 065
  172. DICLOFENAC [Suspect]
     Active Substance: DICLOFENAC
     Indication: Rheumatoid arthritis
     Route: 065
  173. DICLOFENAC [Suspect]
     Active Substance: DICLOFENAC
     Indication: Product used for unknown indication
     Route: 058
  174. CHLORHEXIDINE GLUCONATE [Suspect]
     Active Substance: CHLORHEXIDINE GLUCONATE
     Indication: Rheumatoid arthritis
     Route: 065
  175. CHLORHEXIDINE GLUCONATE [Suspect]
     Active Substance: CHLORHEXIDINE GLUCONATE
     Route: 065
  176. ALENDRONATE SODIUM [Suspect]
     Active Substance: ALENDRONATE SODIUM
     Indication: Rheumatoid arthritis
     Route: 065
  177. ALENDRONATE SODIUM [Suspect]
     Active Substance: ALENDRONATE SODIUM
     Indication: Product used for unknown indication
     Route: 048
  178. ALENDRONATE SODIUM [Suspect]
     Active Substance: ALENDRONATE SODIUM
     Route: 065
  179. ALENDRONATE SODIUM [Suspect]
     Active Substance: ALENDRONATE SODIUM
     Route: 048
  180. ALENDRONATE SODIUM [Suspect]
     Active Substance: ALENDRONATE SODIUM
     Route: 016
  181. OXYCODONE [Suspect]
     Active Substance: OXYCODONE
     Indication: Product used for unknown indication
     Route: 065
  182. RITUXIMAB [Suspect]
     Active Substance: RITUXIMAB
     Indication: Product used for unknown indication
     Route: 065
  183. METFORMIN HYDROCHLORIDE [Suspect]
     Active Substance: METFORMIN HYDROCHLORIDE
     Indication: Product used for unknown indication
     Route: 065
  184. COSENTYX [Suspect]
     Active Substance: SECUKINUMAB
     Indication: Product used for unknown indication
     Route: 065
  185. COSENTYX [Suspect]
     Active Substance: SECUKINUMAB
     Indication: Psoriatic arthropathy
     Route: 065
  186. COSENTYX [Suspect]
     Active Substance: SECUKINUMAB
     Indication: Rheumatoid arthritis
     Route: 065
  187. AIMOVIG [Suspect]
     Active Substance: ERENUMAB-AOOE
     Indication: Migraine
     Route: 065
  188. AIMOVIG [Suspect]
     Active Substance: ERENUMAB-AOOE
     Indication: Product used for unknown indication
     Route: 065
  189. AIMOVIG [Suspect]
     Active Substance: ERENUMAB-AOOE
     Route: 065
  190. AIMOVIG [Suspect]
     Active Substance: ERENUMAB-AOOE
     Route: 065
  191. TRIAMCINOLONE ACETONIDE [Suspect]
     Active Substance: TRIAMCINOLONE ACETONIDE
     Indication: Rheumatoid arthritis
     Route: 065
  192. MAGNESIUM CITRATE [Suspect]
     Active Substance: MAGNESIUM CITRATE
     Indication: Product used for unknown indication
     Route: 065
  193. FOLIC ACID [Suspect]
     Active Substance: FOLIC ACID
     Indication: Rheumatoid arthritis
     Route: 065
  194. FOLIC ACID [Suspect]
     Active Substance: FOLIC ACID
     Indication: Product used for unknown indication
     Route: 048
  195. FOLIC ACID [Suspect]
     Active Substance: FOLIC ACID
     Route: 065
  196. FOLIC ACID [Suspect]
     Active Substance: FOLIC ACID
     Route: 048
  197. FOLIC ACID [Suspect]
     Active Substance: FOLIC ACID
     Route: 048
  198. FOLIC ACID [Suspect]
     Active Substance: FOLIC ACID
     Route: 058
  199. FOLIC ACID [Suspect]
     Active Substance: FOLIC ACID
     Route: 065
  200. FOLIC ACID [Suspect]
     Active Substance: FOLIC ACID
     Route: 048
  201. FOLIC ACID [Suspect]
     Active Substance: FOLIC ACID
     Route: 048
  202. FOLIC ACID [Suspect]
     Active Substance: FOLIC ACID
     Route: 058
  203. FOLIC ACID [Suspect]
     Active Substance: FOLIC ACID
     Route: 048
  204. FOLIC ACID [Suspect]
     Active Substance: FOLIC ACID
     Route: 065
  205. FOLIC ACID [Suspect]
     Active Substance: FOLIC ACID
     Route: 048
  206. FOLIC ACID [Suspect]
     Active Substance: FOLIC ACID
     Route: 065
  207. FOLIC ACID [Suspect]
     Active Substance: FOLIC ACID
     Route: 065
  208. FOLIC ACID [Suspect]
     Active Substance: FOLIC ACID
     Route: 065
  209. FOLIC ACID [Suspect]
     Active Substance: FOLIC ACID
     Route: 065
  210. FOLIC ACID [Suspect]
     Active Substance: FOLIC ACID
     Route: 065
  211. FOLIC ACID [Suspect]
     Active Substance: FOLIC ACID
     Route: 065
  212. FOLIC ACID [Suspect]
     Active Substance: FOLIC ACID
     Route: 058
  213. FOLIC ACID [Suspect]
     Active Substance: FOLIC ACID
     Route: 065
  214. FOLIC ACID [Suspect]
     Active Substance: FOLIC ACID
     Route: 065
  215. APREMILAST [Suspect]
     Active Substance: APREMILAST
     Indication: Rheumatoid arthritis
     Route: 065
  216. IMURAN [Suspect]
     Active Substance: AZATHIOPRINE
     Indication: Rheumatoid arthritis
     Route: 065
  217. IMURAN [Suspect]
     Active Substance: AZATHIOPRINE
     Route: 065
  218. IMURAN [Suspect]
     Active Substance: AZATHIOPRINE
     Route: 065
  219. IMURAN [Suspect]
     Active Substance: AZATHIOPRINE
     Route: 065
  220. CELECOXIB [Suspect]
     Active Substance: CELECOXIB
     Indication: Product used for unknown indication
     Route: 048
  221. CELECOXIB [Suspect]
     Active Substance: CELECOXIB
     Route: 065
  222. CELECOXIB [Suspect]
     Active Substance: CELECOXIB
     Route: 048
  223. CELECOXIB [Suspect]
     Active Substance: CELECOXIB
     Route: 065
  224. CELECOXIB [Suspect]
     Active Substance: CELECOXIB
     Route: 065
  225. CELECOXIB [Suspect]
     Active Substance: CELECOXIB
     Route: 065
  226. CELECOXIB [Suspect]
     Active Substance: CELECOXIB
     Route: 065
  227. CELECOXIB [Suspect]
     Active Substance: CELECOXIB
     Route: 065
  228. ACETAMINOPHEN AND CODEINE [Suspect]
     Active Substance: ACETAMINOPHEN\CODEINE PHOSPHATE
     Indication: Product used for unknown indication
     Route: 065
  229. DICLOFENAC SODIUM [Suspect]
     Active Substance: DICLOFENAC SODIUM
     Indication: Rheumatoid arthritis
     Route: 041
  230. DICLOFENAC SODIUM [Suspect]
     Active Substance: DICLOFENAC SODIUM
     Indication: Product used for unknown indication
  231. ATOMOXETINE [Suspect]
     Active Substance: ATOMOXETINE
     Indication: Migraine
     Route: 065
  232. ATOMOXETINE [Suspect]
     Active Substance: ATOMOXETINE
     Route: 065
  233. ATOMOXETINE [Suspect]
     Active Substance: ATOMOXETINE
     Route: 065
  234. ATOMOXETINE [Suspect]
     Active Substance: ATOMOXETINE
     Route: 065
  235. ATOMOXETINE [Suspect]
     Active Substance: ATOMOXETINE
     Route: 065
  236. ATOMOXETINE [Suspect]
     Active Substance: ATOMOXETINE
     Route: 065
  237. BERINERT [Suspect]
     Active Substance: HUMAN C1-ESTERASE INHIBITOR
     Indication: Rheumatoid arthritis
     Route: 065
  238. BERINERT [Suspect]
     Active Substance: HUMAN C1-ESTERASE INHIBITOR
     Indication: Product used for unknown indication
  239. BOTULINUM TOXIN TYPE A [Suspect]
     Active Substance: BOTULINUM TOXIN TYPE A
     Indication: Product used for unknown indication
     Route: 065
  240. BUTRANS [Suspect]
     Active Substance: BUPRENORPHINE
     Indication: Product used for unknown indication
     Route: 065
  241. BUTRANS [Suspect]
     Active Substance: BUPRENORPHINE
     Route: 065
  242. BUTRANS [Suspect]
     Active Substance: BUPRENORPHINE
     Route: 065
  243. CALCIUM ASCORBATE [Suspect]
     Active Substance: CALCIUM ASCORBATE
     Indication: Product used for unknown indication
     Route: 065
  244. CALCIUM ASCORBATE [Suspect]
     Active Substance: CALCIUM ASCORBATE
     Route: 065
  245. CORTISONE ACETATE [Suspect]
     Active Substance: CORTISONE ACETATE
     Indication: Rheumatoid arthritis
     Route: 065
  246. CORTISONE ACETATE [Suspect]
     Active Substance: CORTISONE ACETATE
     Route: 065
  247. CORTISONE ACETATE [Suspect]
     Active Substance: CORTISONE ACETATE
     Route: 065
  248. CORTISONE ACETATE [Suspect]
     Active Substance: CORTISONE ACETATE
     Route: 065
  249. CORTISONE ACETATE [Suspect]
     Active Substance: CORTISONE ACETATE
     Route: 065
  250. DOMPERIDONE MALEATE [Suspect]
     Active Substance: DOMPERIDONE MALEATE
     Indication: Product used for unknown indication
     Route: 065
  251. DOMPERIDONE MALEATE [Suspect]
     Active Substance: DOMPERIDONE MALEATE
     Route: 065
  252. CALCIUM CITRATE [Suspect]
     Active Substance: CALCIUM CITRATE
     Indication: Product used for unknown indication
     Route: 065
  253. CALCIUM GLUBIONATE [Suspect]
     Active Substance: CALCIUM GLUBIONATE
     Indication: Product used for unknown indication
     Route: 065
  254. CALCIUM GLUBIONATE [Suspect]
     Active Substance: CALCIUM GLUBIONATE
     Route: 065
  255. CALCIUM GLUBIONATE [Suspect]
     Active Substance: CALCIUM GLUBIONATE
     Route: 016
  256. ARAVA [Suspect]
     Active Substance: LEFLUNOMIDE
     Indication: Rheumatoid arthritis
     Route: 048
  257. ARAVA [Suspect]
     Active Substance: LEFLUNOMIDE
     Route: 048
  258. ARAVA [Suspect]
     Active Substance: LEFLUNOMIDE
     Route: 048
  259. ARAVA [Suspect]
     Active Substance: LEFLUNOMIDE
     Route: 065
  260. GOLD [Suspect]
     Active Substance: GOLD
     Indication: Product used for unknown indication
     Route: 065
  261. CIMZIA [Suspect]
     Active Substance: CERTOLIZUMAB PEGOL
     Indication: Rheumatoid arthritis
     Route: 058
  262. CIMZIA [Suspect]
     Active Substance: CERTOLIZUMAB PEGOL
     Route: 058
  263. CIMZIA [Suspect]
     Active Substance: CERTOLIZUMAB PEGOL
     Route: 058
  264. CIMZIA [Suspect]
     Active Substance: CERTOLIZUMAB PEGOL
     Route: 058
  265. CIMZIA [Suspect]
     Active Substance: CERTOLIZUMAB PEGOL
     Route: 058
  266. DESOXIMETASONE [Suspect]
     Active Substance: DESOXIMETASONE
     Indication: Rheumatoid arthritis
     Route: 065
  267. DESOXIMETASONE [Suspect]
     Active Substance: DESOXIMETASONE
     Route: 058
  268. DESOXIMETASONE [Suspect]
     Active Substance: DESOXIMETASONE
     Route: 065
  269. DESOXIMETASONE [Suspect]
     Active Substance: DESOXIMETASONE
     Route: 058
  270. DESOXIMETASONE [Suspect]
     Active Substance: DESOXIMETASONE
     Route: 058
  271. ENBREL [Suspect]
     Active Substance: ETANERCEPT
     Indication: Rheumatoid arthritis
     Route: 058
  272. ENBREL [Suspect]
     Active Substance: ETANERCEPT
     Route: 058
  273. ENBREL [Suspect]
     Active Substance: ETANERCEPT
     Route: 065
  274. ENBREL [Suspect]
     Active Substance: ETANERCEPT
     Route: 065
  275. ENBREL [Suspect]
     Active Substance: ETANERCEPT
     Route: 058
  276. ENBREL [Suspect]
     Active Substance: ETANERCEPT
     Route: 058
  277. ENBREL [Suspect]
     Active Substance: ETANERCEPT
     Route: 058
  278. ENBREL [Suspect]
     Active Substance: ETANERCEPT
     Route: 065
  279. ENBREL [Suspect]
     Active Substance: ETANERCEPT
     Route: 065
  280. ENBREL [Suspect]
     Active Substance: ETANERCEPT
     Route: 058
  281. ENBREL [Suspect]
     Active Substance: ETANERCEPT
     Route: 058
  282. ENBREL [Suspect]
     Active Substance: ETANERCEPT
     Route: 058
  283. ERGOCALCIFEROL [Suspect]
     Active Substance: ERGOCALCIFEROL
     Indication: Product used for unknown indication
     Route: 065
  284. ERGOCALCIFEROL [Suspect]
     Active Substance: ERGOCALCIFEROL
     Route: 065
  285. FLUMETHASONE [Suspect]
     Active Substance: FLUMETHASONE
     Indication: Product used for unknown indication
     Route: 065
  286. LEFLUNOMIDE [Suspect]
     Active Substance: LEFLUNOMIDE
     Indication: Rheumatoid arthritis
     Route: 048
  287. LEFLUNOMIDE [Suspect]
     Active Substance: LEFLUNOMIDE
     Route: 065
  288. LEFLUNOMIDE [Suspect]
     Active Substance: LEFLUNOMIDE
     Route: 065
  289. LEFLUNOMIDE [Suspect]
     Active Substance: LEFLUNOMIDE
     Route: 065
  290. LEFLUNOMIDE [Suspect]
     Active Substance: LEFLUNOMIDE
     Route: 065
  291. LEFLUNOMIDE [Suspect]
     Active Substance: LEFLUNOMIDE
     Route: 065
  292. LEFLUNOMIDE [Suspect]
     Active Substance: LEFLUNOMIDE
     Route: 065
  293. LEFLUNOMIDE [Suspect]
     Active Substance: LEFLUNOMIDE
     Route: 048
  294. LEFLUNOMIDE [Suspect]
     Active Substance: LEFLUNOMIDE
     Route: 048
  295. LEFLUNOMIDE [Suspect]
     Active Substance: LEFLUNOMIDE
     Route: 065
  296. LEFLUNOMIDE [Suspect]
     Active Substance: LEFLUNOMIDE
     Route: 065
  297. LEFLUNOMIDE [Suspect]
     Active Substance: LEFLUNOMIDE
     Route: 065
  298. GOLD SODIUM THIOMALATE [Suspect]
     Active Substance: GOLD SODIUM THIOMALATE
     Indication: Rheumatoid arthritis
     Route: 065
  299. GOLD SODIUM THIOMALATE [Suspect]
     Active Substance: GOLD SODIUM THIOMALATE
     Route: 030
  300. GOLD SODIUM THIOMALATE [Suspect]
     Active Substance: GOLD SODIUM THIOMALATE
     Route: 030
  301. HYDROCORTISONE PROBUTATE [Suspect]
     Active Substance: HYDROCORTISONE PROBUTATE
     Indication: Product used for unknown indication
     Route: 065
  302. HYDROXYCHLOROQUINE SULFATE [Suspect]
     Active Substance: HYDROXYCHLOROQUINE SULFATE
     Indication: Rheumatoid arthritis
     Route: 048
  303. HYDROXYCHLOROQUINE SULFATE [Suspect]
     Active Substance: HYDROXYCHLOROQUINE SULFATE
     Route: 048
  304. HYDROXYCHLOROQUINE SULFATE [Suspect]
     Active Substance: HYDROXYCHLOROQUINE SULFATE
     Route: 065
  305. HYDROXYCHLOROQUINE SULFATE [Suspect]
     Active Substance: HYDROXYCHLOROQUINE SULFATE
     Route: 065
  306. HYDROXYCHLOROQUINE SULFATE [Suspect]
     Active Substance: HYDROXYCHLOROQUINE SULFATE
     Route: 065
  307. HYDROXYCHLOROQUINE SULFATE [Suspect]
     Active Substance: HYDROXYCHLOROQUINE SULFATE
     Route: 065
  308. HYDROXYCHLOROQUINE SULFATE [Suspect]
     Active Substance: HYDROXYCHLOROQUINE SULFATE
     Route: 065
  309. HYDROXYCHLOROQUINE SULFATE [Suspect]
     Active Substance: HYDROXYCHLOROQUINE SULFATE
     Route: 065
  310. HYDROXYCHLOROQUINE SULFATE [Suspect]
     Active Substance: HYDROXYCHLOROQUINE SULFATE
     Route: 048
  311. INFLIXIMAB [Suspect]
     Active Substance: INFLIXIMAB
     Indication: Rheumatoid arthritis
     Route: 042
  312. INFLIXIMAB [Suspect]
     Active Substance: INFLIXIMAB
     Indication: Product used for unknown indication
     Route: 042
  313. INFLIXIMAB [Suspect]
     Active Substance: INFLIXIMAB
     Route: 042
  314. INFLIXIMAB [Suspect]
     Active Substance: INFLIXIMAB
     Route: 042
  315. INFLIXIMAB [Suspect]
     Active Substance: INFLIXIMAB
     Route: 065
  316. INFLIXIMAB [Suspect]
     Active Substance: INFLIXIMAB
     Route: 042
  317. INFLIXIMAB [Suspect]
     Active Substance: INFLIXIMAB
     Route: 042
  318. INFLIXIMAB [Suspect]
     Active Substance: INFLIXIMAB
     Route: 065
  319. INFLIXIMAB [Suspect]
     Active Substance: INFLIXIMAB
     Route: 065
  320. INFLIXIMAB [Suspect]
     Active Substance: INFLIXIMAB
     Route: 065
  321. INFLIXIMAB [Suspect]
     Active Substance: INFLIXIMAB
     Route: 065
  322. REMICADE [Suspect]
     Active Substance: INFLIXIMAB
     Indication: Product used for unknown indication
     Route: 042
  323. REMICADE [Suspect]
     Active Substance: INFLIXIMAB
     Route: 042
  324. REMICADE [Suspect]
     Active Substance: INFLIXIMAB
     Route: 065
  325. REMICADE [Suspect]
     Active Substance: INFLIXIMAB
     Route: 058
  326. REMICADE [Suspect]
     Active Substance: INFLIXIMAB
     Route: 065
  327. REMICADE [Suspect]
     Active Substance: INFLIXIMAB
     Route: 058
  328. REMICADE [Suspect]
     Active Substance: INFLIXIMAB
     Route: 065
  329. REMICADE [Suspect]
     Active Substance: INFLIXIMAB
     Route: 065
  330. REMICADE [Suspect]
     Active Substance: INFLIXIMAB
     Route: 058
  331. ORENCIA [Suspect]
     Active Substance: ABATACEPT
     Indication: Rheumatoid arthritis
     Route: 065
  332. ORENCIA [Suspect]
     Active Substance: ABATACEPT
     Route: 065
  333. ORENCIA [Suspect]
     Active Substance: ABATACEPT
     Route: 065
  334. ORENCIA [Suspect]
     Active Substance: ABATACEPT
     Route: 065
  335. ORENCIA [Suspect]
     Active Substance: ABATACEPT
     Route: 065
  336. ORENCIA [Suspect]
     Active Substance: ABATACEPT
     Route: 065
  337. ORENCIA [Suspect]
     Active Substance: ABATACEPT
     Route: 065
  338. ORENCIA [Suspect]
     Active Substance: ABATACEPT
     Route: 065
  339. ORENCIA [Suspect]
     Active Substance: ABATACEPT
     Route: 065
  340. ORENCIA [Suspect]
     Active Substance: ABATACEPT
     Route: 058
  341. ORENCIA [Suspect]
     Active Substance: ABATACEPT
     Route: 065
  342. ORENCIA [Suspect]
     Active Substance: ABATACEPT
     Route: 058
  343. OXYCODONE TEREPHTHALATE [Suspect]
     Active Substance: OXYCODONE TEREPHTHALATE
     Indication: Product used for unknown indication
     Route: 065
  344. PHTHALYLSULFATHIAZOLE [Suspect]
     Active Substance: PHTHALYLSULFATHIAZOLE
     Indication: Rheumatoid arthritis
     Route: 065
  345. PHTHALYLSULFATHIAZOLE [Suspect]
     Active Substance: PHTHALYLSULFATHIAZOLE
     Indication: Product used for unknown indication
     Route: 048
  346. PHTHALYLSULFATHIAZOLE [Suspect]
     Active Substance: PHTHALYLSULFATHIAZOLE
     Route: 065
  347. PHTHALYLSULFATHIAZOLE [Suspect]
     Active Substance: PHTHALYLSULFATHIAZOLE
     Route: 065
  348. PHTHALYLSULFATHIAZOLE [Suspect]
     Active Substance: PHTHALYLSULFATHIAZOLE
     Route: 058
  349. PHTHALYLSULFATHIAZOLE [Suspect]
     Active Substance: PHTHALYLSULFATHIAZOLE
     Route: 048
  350. PHTHALYLSULFATHIAZOLE [Suspect]
     Active Substance: PHTHALYLSULFATHIAZOLE
     Route: 065
  351. PHTHALYLSULFATHIAZOLE [Suspect]
     Active Substance: PHTHALYLSULFATHIAZOLE
     Route: 065
  352. PLAQUENIL [Suspect]
     Active Substance: HYDROXYCHLOROQUINE SULFATE
     Indication: Rheumatoid arthritis
     Route: 065
  353. PREDNISONE [Suspect]
     Active Substance: PREDNISONE
     Indication: Rheumatoid arthritis
     Route: 065
  354. PREDNISONE [Suspect]
     Active Substance: PREDNISONE
     Route: 048
  355. PREDNISONE [Suspect]
     Active Substance: PREDNISONE
     Route: 065
  356. PREDNISONE [Suspect]
     Active Substance: PREDNISONE
     Route: 048
  357. PREDNISONE [Suspect]
     Active Substance: PREDNISONE
     Route: 065
  358. PREDNISONE [Suspect]
     Active Substance: PREDNISONE
     Route: 065
  359. PREDNISONE [Suspect]
     Active Substance: PREDNISONE
     Route: 065
  360. PREDNISONE [Suspect]
     Active Substance: PREDNISONE
     Route: 048
  361. PREDNISONE [Suspect]
     Active Substance: PREDNISONE
     Route: 048
  362. PREDNISONE [Suspect]
     Active Substance: PREDNISONE
     Route: 048
  363. RANITIDINE [Suspect]
     Active Substance: RANITIDINE
     Indication: Product used for unknown indication
     Route: 065
  364. CETIRIZINE HYDROCHLORIDE\PSEUDOEPHEDRINE HYDROCHLORIDE [Suspect]
     Active Substance: CETIRIZINE HYDROCHLORIDE\PSEUDOEPHEDRINE HYDROCHLORIDE
     Indication: Rheumatoid arthritis
     Route: 065
  365. CETIRIZINE HYDROCHLORIDE\PSEUDOEPHEDRINE HYDROCHLORIDE [Suspect]
     Active Substance: CETIRIZINE HYDROCHLORIDE\PSEUDOEPHEDRINE HYDROCHLORIDE
     Indication: Product used for unknown indication
     Route: 065
  366. CETIRIZINE HYDROCHLORIDE\PSEUDOEPHEDRINE HYDROCHLORIDE [Suspect]
     Active Substance: CETIRIZINE HYDROCHLORIDE\PSEUDOEPHEDRINE HYDROCHLORIDE
     Route: 065
  367. CETIRIZINE HYDROCHLORIDE\PSEUDOEPHEDRINE HYDROCHLORIDE [Suspect]
     Active Substance: CETIRIZINE HYDROCHLORIDE\PSEUDOEPHEDRINE HYDROCHLORIDE
     Route: 065
  368. CETIRIZINE HYDROCHLORIDE\PSEUDOEPHEDRINE HYDROCHLORIDE [Suspect]
     Active Substance: CETIRIZINE HYDROCHLORIDE\PSEUDOEPHEDRINE HYDROCHLORIDE
     Route: 065
  369. CETIRIZINE HYDROCHLORIDE\PSEUDOEPHEDRINE HYDROCHLORIDE [Suspect]
     Active Substance: CETIRIZINE HYDROCHLORIDE\PSEUDOEPHEDRINE HYDROCHLORIDE
     Route: 065
  370. CETIRIZINE HYDROCHLORIDE\PSEUDOEPHEDRINE HYDROCHLORIDE [Suspect]
     Active Substance: CETIRIZINE HYDROCHLORIDE\PSEUDOEPHEDRINE HYDROCHLORIDE
     Route: 065
  371. CETIRIZINE HYDROCHLORIDE\PSEUDOEPHEDRINE HYDROCHLORIDE [Suspect]
     Active Substance: CETIRIZINE HYDROCHLORIDE\PSEUDOEPHEDRINE HYDROCHLORIDE
     Route: 065
  372. TRAMADOL HYDROCHLORIDE [Suspect]
     Active Substance: TRAMADOL HYDROCHLORIDE
     Indication: Product used for unknown indication
     Route: 065
  373. RIBOFLAVIN [Suspect]
     Active Substance: RIBOFLAVIN
     Indication: Product used for unknown indication
     Route: 065
  374. RIBOFLAVIN [Suspect]
     Active Substance: RIBOFLAVIN
     Route: 065

REACTIONS (10)
  - Lower respiratory tract infection [Fatal]
  - Helicobacter infection [Fatal]
  - Normal newborn [Fatal]
  - Live birth [Fatal]
  - Nasopharyngitis [Fatal]
  - Onychomycosis [Fatal]
  - Pneumonia [Fatal]
  - Taste disorder [Fatal]
  - Exposure during pregnancy [Fatal]
  - Wound infection [Fatal]
